FAERS Safety Report 8676918 (Version 2)
Quarter: 2012Q4

REPORT INFORMATION
  Report Type: 
  Country: US (occurrence: US)
  Receive Date: 20120723
  Receipt Date: 20120903
  Transmission Date: 20130627
  Serious: No
  Sender: FDA-Public Use
  Company Number: US-PFIZER INC-2012172488

PATIENT
  Age: 49 Year

DRUGS (5)
  1. AMOXICILLIN [Suspect]
     Dosage: UNK
  2. AMPICILLIN [Suspect]
     Dosage: UNK
  3. AZITHROMYCIN [Suspect]
     Dosage: UNK
  4. BACTRIM [Suspect]
     Dosage: UNK
  5. CYMBALTA [Suspect]
     Dosage: UNK

REACTIONS (1)
  - Drug hypersensitivity [Unknown]
